FAERS Safety Report 5677809-X (Version None)
Quarter: 2008Q1

REPORT INFORMATION
  Report Type: 
  Country: None (occurrence: None)
  Receive Date: 20080324
  Receipt Date: 20080317
  Transmission Date: 20080703
  Serious: Yes (Hospitalization)
  Sender: FDA-Public Use
  Company Number: US-GENENTECH-256405

PATIENT
  Age: 53 Year
  Sex: Female

DRUGS (3)
  1. BEVACIZUMAB [Suspect]
     Indication: GLIOMA
     Dosage: UNK, UNKNOWN
     Route: 065
     Dates: end: 20080225
  2. ENZASTAURIN [Suspect]
     Indication: GLIOMA
     Dosage: UNK, UNKNOWN
     Route: 065
     Dates: end: 20080225
  3. DEXAMETHASONE TAB [Concomitant]
     Indication: DRUG USE FOR UNKNOWN INDICATION
     Dosage: 24 MG, UNK

REACTIONS (12)
  - ACUTE PRERENAL FAILURE [None]
  - ANOREXIA [None]
  - BLOOD AMYLASE INCREASED [None]
  - BLOOD CREATININE INCREASED [None]
  - DEHYDRATION [None]
  - DEPRESSION [None]
  - GASTROENTERITIS VIRAL [None]
  - HYPOTENSION [None]
  - INFECTION [None]
  - MUSCULAR WEAKNESS [None]
  - RECTAL ULCER [None]
  - REFUSAL OF TREATMENT BY PATIENT [None]
